FAERS Safety Report 14326075 (Version 1)
Quarter: 2017Q4

REPORT INFORMATION
  Report Type: Spontaneous
  Country: US (occurrence: US)
  Receive Date: 20171226
  Receipt Date: 20171226
  Transmission Date: 20180321
  Serious: Yes (Hospitalization, Other)
  Sender: FDA-Public Use
  Company Number: US-BAUSCH-BL-2017-034402

PATIENT
  Age: 65 Year
  Sex: Male

DRUGS (11)
  1. TAS-120 [Suspect]
     Active Substance: INVESTIGATIONAL PRODUCT
     Indication: CHOLANGIOCARCINOMA
     Dosage: LAST CYCLE 10 STARTED ON 04 AUGUST 2017
     Route: 048
     Dates: start: 20170127, end: 20170824
  2. LIDOCAINE. [Concomitant]
     Active Substance: LIDOCAINE
     Indication: PAIN
     Dates: start: 20160805
  3. COLECALCIFEROL [Concomitant]
     Active Substance: CHOLECALCIFEROL
     Indication: VITAMIN D DEFICIENCY
     Dates: start: 20160317
  4. LORAZEPAM. [Suspect]
     Active Substance: LORAZEPAM
     Indication: PAIN
     Route: 048
     Dates: start: 2016, end: 20170916
  5. LOVENOX [Concomitant]
     Active Substance: ENOXAPARIN SODIUM
     Indication: PORTAL VEIN THROMBOSIS
     Dates: start: 20170623
  6. PARACETAMOL [Concomitant]
     Active Substance: ACETAMINOPHEN
     Indication: PAIN
     Dates: start: 20170912
  7. SENNA ALEXANDRINA [Concomitant]
     Active Substance: SENNA LEAF
     Indication: CONSTIPATION
     Dates: start: 20160316
  8. MORPHINE [Concomitant]
     Active Substance: MORPHINE
     Indication: PAIN
     Dates: start: 20161012, end: 20170916
  9. GLYCOLAX [Concomitant]
     Active Substance: POLYETHYLENE GLYCOL 3350
     Indication: CONSTIPATION
     Dates: start: 20170119
  10. SEVELAMER [Concomitant]
     Active Substance: SEVELAMER
     Indication: PROPHYLAXIS
     Dates: start: 20170421
  11. COMPAZINE [Concomitant]
     Active Substance: PROCHLORPERAZINE MALEATE
     Indication: NAUSEA
     Dates: start: 20170301

REACTIONS (7)
  - Asthenia [Unknown]
  - General physical health deterioration [Unknown]
  - Bile duct obstruction [Unknown]
  - Cholangiocarcinoma [Unknown]
  - Confusional state [Recovered/Resolved]
  - Agitation [Unknown]
  - Hepatic encephalopathy [Unknown]

NARRATIVE: CASE EVENT DATE: 2017
